FAERS Safety Report 5640617-X (Version None)
Quarter: 2008Q1

REPORT INFORMATION
  Report Type: 
  Country: None (occurrence: None)
  Receive Date: 20080227
  Receipt Date: 20080215
  Transmission Date: 20080703
  Serious: Yes (Other)
  Sender: FDA-Public Use
  Company Number: US-AMGEN-STX219800

PATIENT
  Sex: Male

DRUGS (3)
  1. ENBREL [Suspect]
     Indication: PSORIASIS
     Route: 058
     Dates: start: 20061211, end: 20070416
  2. SKELAXIN [Concomitant]
  3. NAPROXEN [Concomitant]

REACTIONS (2)
  - HEPATIC STEATOSIS [None]
  - MYCOSIS FUNGOIDES [None]
